FAERS Safety Report 20443412 (Version 1)
Quarter: 2022Q1

REPORT INFORMATION
  Report Type: Report from Study
  Country: DE (occurrence: DE)
  Receive Date: 20220208
  Receipt Date: 20220208
  Transmission Date: 20220423
  Serious: Yes (Other)
  Sender: FDA-Public Use
  Company Number: DE-NOVARTISPH-NVSC2020DE114724

PATIENT
  Age: 30 Year
  Sex: Female

DRUGS (1)
  1. ALPELISIB [Suspect]
     Active Substance: ALPELISIB
     Indication: PIK3CA related overgrowth spectrum
     Dosage: 250 MG, QD
     Route: 065
     Dates: start: 20200409, end: 20200414

REACTIONS (5)
  - Oesophageal candidiasis [Unknown]
  - Ill-defined disorder [Unknown]
  - Oedema [Unknown]
  - Rash [Unknown]
  - Hyperglycaemia [Unknown]
